FAERS Safety Report 5722441-2 (Version None)
Quarter: 2008Q2

REPORT INFORMATION
  Report Type: 
  Country: None (occurrence: None)
  Receive Date: 20080429
  Receipt Date: 20071206
  Transmission Date: 20081010
  Serious: No
  Sender: FDA-Public Use
  Company Number: US-ASTRAZENECA-2007UW27829

PATIENT
  Age: 61 Year
  Sex: Female
  Weight: 72.6 kg

DRUGS (5)
  1. NEXIUM [Suspect]
     Indication: GASTROOESOPHAGEAL REFLUX DISEASE
     Route: 048
     Dates: start: 20010101
  2. THYROID TAB [Concomitant]
  3. DIOVAN HCT [Concomitant]
  4. FISH OILS [Concomitant]
  5. OSTEO BI-FLEX [Concomitant]

REACTIONS (2)
  - FIBROMYALGIA [None]
  - MUSCLE SPASMS [None]
